FAERS Safety Report 8419297-6 (Version None)
Quarter: 2012Q2

REPORT INFORMATION
  Report Type: 
  Country: None (occurrence: None)
  Receive Date: 20120607
  Receipt Date: 20120530
  Transmission Date: 20120825
  Serious: Yes (Other)
  Sender: FDA-Public Use
  Company Number: US-JNJFOC-20120103959

PATIENT
  Sex: Male

DRUGS (6)
  1. METHYLPREDNISOLONE [Suspect]
     Indication: STEROID THERAPY
     Route: 048
  2. SYMBICORT [Suspect]
     Indication: WHEEZING
     Route: 048
  3. PREDNISONE [Suspect]
     Indication: STEROID THERAPY
     Route: 048
  4. SYMBICORT [Suspect]
     Indication: STEROID THERAPY
     Route: 048
  5. CIPROFLOXACIN [Suspect]
     Indication: INFECTION
     Route: 048
  6. LEVAQUIN [Suspect]
     Indication: CELLULITIS
     Route: 048
     Dates: start: 20110519, end: 20110524

REACTIONS (4)
  - TENDON DISORDER [None]
  - TENDONITIS [None]
  - BURSITIS [None]
  - JOINT LOCK [None]
